FAERS Safety Report 4452910-7 (Version None)
Quarter: 2004Q3

REPORT INFORMATION
  Report Type: 
  Country: None (occurrence: None)
  Receive Date: 20040916
  Receipt Date: 20040901
  Transmission Date: 20050211
  Serious: Yes (Hospitalization)
  Sender: FDA-Public Use
  Company Number: 2004-DE-04634GD

PATIENT
  Age: 10 Year
  Sex: Male

DRUGS (8)
  1. LITHIUM CARBONATE [Suspect]
     Indication: BIPOLAR DISORDER
     Dosage: 1200 MG (TWICE DAILY),
  2. LITHIUM CARBONATE [Suspect]
     Indication: PSYCHOTIC DISORDER
     Dosage: 1200 MG (TWICE DAILY),
  3. CLONIDINE [Suspect]
     Dosage: 0.4 MG (TWICE DAILY)
  4. METHYLPHENIDATE HCL [Suspect]
     Dosage: 36 MG (ONCE DAILY), IN THE MORNING
  5. ESCITALOPRAM (ESCITALOPRAM) [Suspect]
     Dosage: 10 MG (ONCE DAILY),
  6. OXACARBAZINE (ANTIEPILEPTICS) [Suspect]
     Dosage: 600 MG (ONCE DAILY)
  7. DEPAKOTE [Suspect]
     Dosage: 1500 MG (ONE THIRD OF DAILY DOSE IN THE MORNING AND TWO THIRDS AT BEDTIME
  8. LEVOTHYROXINE SODIUM [Suspect]

REACTIONS (23)
  - ABDOMINAL PAIN [None]
  - ATRIOVENTRICULAR BLOCK FIRST DEGREE [None]
  - CHEST PAIN [None]
  - CONDUCTION DISORDER [None]
  - DIARRHOEA [None]
  - DISORIENTATION [None]
  - DIZZINESS [None]
  - DRUG INTERACTION [None]
  - DRUG LEVEL INCREASED [None]
  - ELECTROCARDIOGRAM QRS COMPLEX PROLONGED [None]
  - HYPERHIDROSIS [None]
  - HYPOTENSION [None]
  - HYPOTHYROIDISM [None]
  - MARKEDLY REDUCED DIETARY INTAKE [None]
  - PALLOR [None]
  - PALPITATIONS [None]
  - TACHYARRHYTHMIA [None]
  - TACHYCARDIA [None]
  - THERAPEUTIC AGENT TOXICITY [None]
  - VENTRICULAR EXTRASYSTOLES [None]
  - VENTRICULAR TACHYCARDIA [None]
  - VOMITING [None]
  - WHITE BLOOD CELL COUNT INCREASED [None]
